FAERS Safety Report 24378207 (Version 6)
Quarter: 2024Q4

REPORT INFORMATION
  Report Type: Spontaneous
  Country: CA (occurrence: CA)
  Receive Date: 20240930
  Receipt Date: 20241226
  Transmission Date: 20250115
  Serious: Yes (Hospitalization, Other)
  Sender: CELLTRION
  Company Number: CA-PFIZER INC-202400260720

PATIENT

DRUGS (4)
  1. INFLECTRA [Suspect]
     Active Substance: INFLIXIMAB-DYYB
     Indication: Colitis ulcerative
     Dosage: 10 MG/KG, (700 MG) WEEK 0 ADMINISTERED IN HOSPITAL
     Route: 042
     Dates: start: 20240914, end: 20240914
  2. INFLECTRA [Suspect]
     Active Substance: INFLIXIMAB-DYYB
     Dosage: 700 MG, AFTER 2 WEEKS (WEEK 2 INDUCTION) (Q2,6 WEEKS THEN EVERY 8 WEEKS)
     Route: 042
     Dates: start: 20240928
  3. INFLECTRA [Suspect]
     Active Substance: INFLIXIMAB-DYYB
     Dosage: 700 MG, Q2,6 WEEKS THEN EVERY 8 WEEKS
     Route: 042
     Dates: start: 20241015
  4. PREDNISONE [Concomitant]
     Active Substance: PREDNISONE
     Dosage: 30 MG, FREQUENCY: UNKNOWN
     Route: 065
     Dates: start: 202409

REACTIONS (9)
  - Diarrhoea haemorrhagic [Not Recovered/Not Resolved]
  - Colitis ulcerative [Unknown]
  - Infection [Unknown]
  - Off label use [Unknown]
  - Condition aggravated [Not Recovered/Not Resolved]
  - Pyrexia [Not Recovered/Not Resolved]
  - Chills [Not Recovered/Not Resolved]
  - Decreased appetite [Not Recovered/Not Resolved]
  - Inappropriate schedule of product administration [Unknown]

NARRATIVE: CASE EVENT DATE: 20240101
